FAERS Safety Report 23253397 (Version 1)
Quarter: 2023Q4

REPORT INFORMATION
  Report Type: Spontaneous
  Country: TW (occurrence: TW)
  Receive Date: 20231202
  Receipt Date: 20231202
  Transmission Date: 20240110
  Serious: Yes (Death, Hospitalization)
  Sender: FDA-Public Use
  Company Number: TW-002147023-NVSC2023TW254290

PATIENT
  Age: 90 Year
  Sex: Male

DRUGS (1)
  1. XOLAIR [Suspect]
     Active Substance: OMALIZUMAB
     Indication: Asthma
     Dosage: UNK
     Route: 065

REACTIONS (3)
  - Sepsis [Fatal]
  - Multiple organ dysfunction syndrome [Fatal]
  - Fall [Unknown]
